FAERS Safety Report 22132559 (Version 2)
Quarter: 2023Q2

REPORT INFORMATION
  Report Type: Spontaneous
  Country: CN (occurrence: CN)
  Receive Date: 20230323
  Receipt Date: 20230406
  Transmission Date: 20230721
  Serious: Yes (Other)
  Sender: FDA-Public Use
  Company Number: CN-MLMSERVICE-20230313-4161161-1

PATIENT
  Age: 73 Year
  Sex: Male

DRUGS (12)
  1. DEXAMETHASONE [Suspect]
     Active Substance: DEXAMETHASONE
     Indication: Central nervous system leukaemia
     Dosage: INTRATHECAL INJECTION OF CHEMOTHERAPY DRUGS WAS GIVEN 3 TIMES AND 8 TIMES
     Route: 037
     Dates: start: 2018
  2. DEXAMETHASONE [Suspect]
     Active Substance: DEXAMETHASONE
     Dosage: INTRATHECAL CHEMOTHERAPY DRUGS WERE GIVEN INTERMITTENTLY FOR 5 TIMES
     Route: 037
     Dates: start: 2019
  3. DEXAMETHASONE [Suspect]
     Active Substance: DEXAMETHASONE
     Route: 037
     Dates: start: 20200416, end: 20200416
  4. DEXAMETHASONE [Suspect]
     Active Substance: DEXAMETHASONE
     Route: 037
     Dates: start: 20200419, end: 20200419
  5. CYTARABINE [Suspect]
     Active Substance: CYTARABINE
     Indication: Central nervous system leukaemia
     Dosage: INTRATHECAL INJECTION OF CHEMOTHERAPY DRUGS WAS GIVEN 3 TIMES AND 8 TIMES
     Route: 037
     Dates: start: 2018
  6. CYTARABINE [Suspect]
     Active Substance: CYTARABINE
     Dosage: INTRATHECAL CHEMOTHERAPY DRUGS WERE GIVEN INTERMITTENTLY FOR 5 TIMES
     Route: 037
     Dates: start: 2019
  7. CYTARABINE [Suspect]
     Active Substance: CYTARABINE
     Route: 037
     Dates: start: 20200416, end: 20200416
  8. CYTARABINE [Suspect]
     Active Substance: CYTARABINE
     Route: 037
     Dates: start: 20200419, end: 20200419
  9. METHOTREXATE [Suspect]
     Active Substance: METHOTREXATE
     Indication: Central nervous system leukaemia
     Dosage: INTRATHECAL INJECTION OF CHEMOTHERAPY DRUGS WAS GIVEN 3 TIMES AND 8 TIMES
     Route: 037
     Dates: start: 2018
  10. METHOTREXATE [Suspect]
     Active Substance: METHOTREXATE
     Dosage: INTRATHECAL CHEMOTHERAPY DRUGS WERE GIVEN INTERMITTENTLY FOR 5 TIMES
     Route: 037
     Dates: start: 2019
  11. METHOTREXATE [Suspect]
     Active Substance: METHOTREXATE
     Route: 037
     Dates: start: 20200416, end: 20200416
  12. METHOTREXATE [Suspect]
     Active Substance: METHOTREXATE
     Route: 037
     Dates: start: 20200419, end: 20200419

REACTIONS (2)
  - Pancytopenia [Recovering/Resolving]
  - Stomatitis [Recovered/Resolved]

NARRATIVE: CASE EVENT DATE: 20200401
